FAERS Safety Report 7897070-5 (Version None)
Quarter: 2011Q4

REPORT INFORMATION
  Report Type: 
  Country: None (occurrence: None)
  Receive Date: 20111104
  Receipt Date: 20111104
  Transmission Date: 20120403
  Serious: Yes (Life-Threatening, Other)
  Sender: FDA-Public Use
  Company Number: None

PATIENT
  Age: 57 Year
  Sex: Female
  Weight: 74.8435 kg

DRUGS (2)
  1. HYDROCODONE 5MG / 325MG WATSON [Suspect]
     Indication: ROTATOR CUFF SYNDROME
     Dosage: 5MG / 325MG 4-6 HOURS AS NEED ORAL
     Route: 048
     Dates: start: 20110801
  2. MELOXICAM [Suspect]
     Indication: ROTATOR CUFF SYNDROME
     Dosage: 15MG 1X DAILY ORAL
     Route: 048
     Dates: start: 20110201

REACTIONS (4)
  - PRURITUS [None]
  - RASH [None]
  - URTICARIA [None]
  - EYELIDS PRURITUS [None]
